FAERS Safety Report 5828611-7 (Version None)
Quarter: 2008Q3

REPORT INFORMATION
  Report Type: 
  Country: None (occurrence: None)
  Receive Date: 20080730
  Receipt Date: 20080730
  Transmission Date: 20090109
  Serious: Yes (Life-Threatening)
  Sender: FDA-Public Use
  Company Number: None

PATIENT
  Age: 48 Year
  Sex: Male
  Weight: 99.7913 kg

DRUGS (2)
  1. PROAIR HFA [Suspect]
     Indication: ASTHMA
     Dosage: 2 INHALATIONS 4X DAILY INHAL
     Route: 055
     Dates: start: 20060720, end: 20080729
  2. PROVENTIL-HFA [Suspect]
     Indication: ASTHMA
     Dates: start: 20070105, end: 20070315

REACTIONS (6)
  - ASTHMA [None]
  - CONDITION AGGRAVATED [None]
  - DRUG INEFFECTIVE [None]
  - MIDDLE INSOMNIA [None]
  - PHARMACEUTICAL PRODUCT COMPLAINT [None]
  - SUFFOCATION FEELING [None]
